FAERS Safety Report 14855628 (Version 1)
Quarter: 2018Q2

REPORT INFORMATION
  Report Type: Spontaneous
  Country: US (occurrence: US)
  Receive Date: 20180507
  Receipt Date: 20180507
  Transmission Date: 20180711
  Serious: No
  Sender: FDA-Public Use
  Company Number: US-ROCHE-1995891

PATIENT
  Sex: Female

DRUGS (2)
  1. ESBRIET [Suspect]
     Active Substance: PIRFENIDONE
     Dosage: 2 PILLS, 3 TIMES A DAY ;ONGOING: UNKNOWN
     Route: 048
     Dates: start: 201709
  2. ESBRIET [Suspect]
     Active Substance: PIRFENIDONE
     Indication: IDIOPATHIC PULMONARY FIBROSIS
     Dosage: 1 PILL, 3 TIMES A DAY ;ONGOING: UNKNOWN
     Route: 048
     Dates: start: 201709

REACTIONS (3)
  - Hot flush [Unknown]
  - Somnolence [Unknown]
  - Nausea [Unknown]
